FAERS Safety Report 12255608 (Version 1)
Quarter: 2016Q2

REPORT INFORMATION
  Report Type: Spontaneous
  Country: US (occurrence: None)
  Receive Date: 20160411
  Receipt Date: 20160411
  Transmission Date: 20160815
  Serious: Yes (Death)
  Sender: FDA-Public Use
  Company Number: None

PATIENT
  Age: 69 Year
  Sex: Female
  Weight: 61.24 kg

DRUGS (16)
  1. THE ORIGINAL NATURAL HERB COUGH DROPS [Suspect]
     Active Substance: MENTHOL
     Indication: COUGH
     Dosage: 38 TABLET(S) 38 TAKEN BY MOUTH
     Route: 048
  2. CARBIDOPA/LEVO [Concomitant]
  3. LANTUS SOLOSTAR [Concomitant]
     Active Substance: INSULIN GLARGINE
  4. ACETAMINOPHEN. [Concomitant]
     Active Substance: ACETAMINOPHEN
  5. HUMALOG [Concomitant]
     Active Substance: INSULIN LISPRO
  6. ENOXAPARIN [Concomitant]
     Active Substance: ENOXAPARIN
  7. ASPIRIN. [Concomitant]
     Active Substance: ASPIRIN
  8. CHOLOCALCIFEROL [Concomitant]
  9. ASCORBIC ACID. [Concomitant]
     Active Substance: ASCORBIC ACID
  10. LEVOTHYROXINE. [Concomitant]
     Active Substance: LEVOTHYROXINE
  11. TRAMADOL. [Concomitant]
     Active Substance: TRAMADOL
  12. CALCIUM W/VIT D [Concomitant]
  13. MULTIVITAMIN W/MINERALS [Concomitant]
     Active Substance: MINERALS\VITAMINS
  14. SYSTANE ULTRA OPTH [Concomitant]
  15. VITAMIN B COMPLEX [Concomitant]
     Active Substance: CYANOCOBALAMIN\DEXPANTHENOL\NIACINAMIDE\PYRIDOXINE HYDROCHLORIDE\RIBOFLAVIN 5^-PHOSPHATE SODIUM\THIAMINE HYDROCHLORIDE\VITAMIN B COMPLEX
  16. MAGNESIUM OXIDE. [Concomitant]
     Active Substance: MAGNESIUM OXIDE

REACTIONS (3)
  - Vascular dementia [None]
  - Hip fracture [None]
  - Spinal fracture [None]

NARRATIVE: CASE EVENT DATE: 20160320
